FAERS Safety Report 17146529 (Version 1)
Quarter: 2019Q4

REPORT INFORMATION
  Report Type: Spontaneous
  Country: US (occurrence: US)
  Receive Date: 20191212
  Receipt Date: 20191212
  Transmission Date: 20200122
  Serious: Yes (Life-Threatening, Hospitalization, Other)
  Sender: FDA-Public Use
  Company Number: US-GALDERMA-US19063117

PATIENT
  Age: 18 Year
  Sex: Male

DRUGS (4)
  1. BENZOYL PEROXIDE (BENZOYL PEROXIDE) [Suspect]
     Active Substance: BENZOYL PEROXIDE
     Indication: PRODUCT USED FOR UNKNOWN INDICATION
     Route: 061
  2. SULFAMETHOXAZOLE, TRIMETHOPRIM [Concomitant]
     Active Substance: SULFAMETHOXAZOLE\TRIMETHOPRIM
     Indication: ACNE
     Route: 065
  3. ADAPALENE (ADAPALENE) [Suspect]
     Active Substance: ADAPALENE
     Indication: PRODUCT USED FOR UNKNOWN INDICATION
     Route: 061
  4. DAPSONE. [Concomitant]
     Active Substance: DAPSONE
     Indication: PRODUCT USED FOR UNKNOWN INDICATION
     Route: 061

REACTIONS (14)
  - Pyrexia [Recovering/Resolving]
  - Pneumothorax [Recovering/Resolving]
  - Respiratory failure [Recovering/Resolving]
  - Pneumomediastinum [Recovering/Resolving]
  - Vomiting [Recovering/Resolving]
  - Pharyngitis [Recovering/Resolving]
  - Cough [Recovering/Resolving]
  - Viral infection [Recovering/Resolving]
  - Hypoxia [Recovering/Resolving]
  - Pleural effusion [Recovering/Resolving]
  - Dizziness [Recovering/Resolving]
  - Dyspnoea [Recovering/Resolving]
  - Jugular vein thrombosis [Recovering/Resolving]
  - Nausea [Recovering/Resolving]
